FAERS Safety Report 9816253 (Version 3)
Quarter: 2014Q2

REPORT INFORMATION
  Report Type: Spontaneous
  Country: US (occurrence: US)
  Receive Date: 20140114
  Receipt Date: 20140401
  Transmission Date: 20141212
  Serious: Yes (Hospitalization, Other)
  Sender: FDA-Public Use
  Company Number: US-BAYER-2014-001970

PATIENT
  Age: 32 Year
  Sex: Female
  Weight: 65.76 kg

DRUGS (1)
  1. MIRENA [Suspect]
     Indication: MENORRHAGIA
     Dosage: 20 MCG/24HR, CONT
     Route: 015
     Dates: start: 20060330, end: 20120427

REACTIONS (10)
  - Uterine perforation [None]
  - Device misuse [None]
  - Device difficult to use [None]
  - Pain [None]
  - Genital haemorrhage [None]
  - Injury [None]
  - Emotional distress [None]
  - Mental disorder [None]
  - Scar [None]
  - Menorrhagia [None]
